FAERS Safety Report 8545202-8 (Version None)
Quarter: 2012Q3

REPORT INFORMATION
  Report Type: 
  Country: None (occurrence: None)
  Receive Date: 20120719
  Receipt Date: 20120719
  Transmission Date: 20120928
  Serious: Yes (Hospitalization)
  Sender: FDA-Public Use
  Company Number: None

PATIENT
  Age: 61 Year
  Sex: Male
  Weight: 151.8 kg

DRUGS (1)
  1. ALLOPURINOL [Suspect]
     Indication: GOUT
     Dosage: 100 MG BID PO
     Route: 048
     Dates: start: 20110518, end: 20120201

REACTIONS (5)
  - OEDEMA PERIPHERAL [None]
  - EOSINOPHILIA [None]
  - PSORIASIS [None]
  - CONDITION AGGRAVATED [None]
  - RASH [None]
